FAERS Safety Report 19058616 (Version 2)
Quarter: 2021Q2

REPORT INFORMATION
  Report Type: Spontaneous
  Country: US (occurrence: US)
  Receive Date: 20210325
  Receipt Date: 20210413
  Transmission Date: 20210717
  Serious: Yes (Hospitalization)
  Sender: FDA-Public Use
  Company Number: US-GW PHARMA-202103USGW01249

PATIENT

DRUGS (1)
  1. EPIDIOLEX [Suspect]
     Active Substance: CANNABIDIOL
     Indication: PRODUCT USED FOR UNKNOWN INDICATION
     Dosage: 21.81 MG/KG/DAY, 240 MILLIGRAM, BID (WITH MEAL)
     Route: 048
     Dates: start: 20190116

REACTIONS (2)
  - Blood sodium decreased [Unknown]
  - Prescribed overdose [Unknown]

NARRATIVE: CASE EVENT DATE: 202102
